FAERS Safety Report 13174415 (Version 1)
Quarter: 2017Q1

REPORT INFORMATION
  Report Type: Spontaneous
  Country: CA (occurrence: CA)
  Receive Date: 20170201
  Receipt Date: 20170201
  Transmission Date: 20170428
  Serious: Yes (Life-Threatening, Disabling, Other)
  Sender: FDA-Public Use
  Company Number: CA-009507513-1701CAN012307

PATIENT
  Sex: Male
  Weight: 113.38 kg

DRUGS (2)
  1. PROPECIA [Suspect]
     Active Substance: FINASTERIDE
     Indication: ALOPECIA
     Dosage: 1.0 MILLIGRAM, 1 EVERY 1 DAY(S)
     Route: 048
  2. PROPECIA [Suspect]
     Active Substance: FINASTERIDE
     Dosage: 1 EVERY 1 DAY(S), QD
     Route: 048

REACTIONS (10)
  - Erectile dysfunction [Not Recovered/Not Resolved]
  - Mammogram [Not Recovered/Not Resolved]
  - Mental disorder [Not Recovered/Not Resolved]
  - Prostatic pain [Not Recovered/Not Resolved]
  - Depression suicidal [Not Recovered/Not Resolved]
  - Testicular pain [Not Recovered/Not Resolved]
  - Ultrasound scan [Not Recovered/Not Resolved]
  - Gynaecomastia [Not Recovered/Not Resolved]
  - Libido decreased [Not Recovered/Not Resolved]
  - Penile size reduced [Not Recovered/Not Resolved]
